FAERS Safety Report 4694937-6 (Version None)
Quarter: 2005Q2

REPORT INFORMATION
  Report Type: 
  Country: None (occurrence: None)
  Receive Date: 20050617
  Receipt Date: 20050603
  Transmission Date: 20051028
  Serious: Yes (Hospitalization)
  Sender: FDA-Public Use
  Company Number: AZAAU200500151

PATIENT
  Age: 58 Year
  Sex: Female

DRUGS (1)
  1. AZACITIDINE (AZACITIDINE) (INJECTION) [Suspect]
     Indication: MYELODYSPLASTIC SYNDROME
     Dosage: SUBCUTANEOUS
     Route: 058

REACTIONS (2)
  - FEBRILE NEUTROPENIA [None]
  - PAROTITIS [None]
